FAERS Safety Report 11667364 (Version 1)
Quarter: 2015Q4

REPORT INFORMATION
  Report Type: Spontaneous
  Country: US (occurrence: US)
  Receive Date: 20151027
  Receipt Date: 20151027
  Transmission Date: 20160304
  Serious: No
  Sender: FDA-Public Use
  Company Number: US-ELI_LILLY_AND_COMPANY-US201003000309

PATIENT
  Age: 72 Year
  Sex: Female

DRUGS (2)
  1. FORTEO [Suspect]
     Active Substance: TERIPARATIDE
     Indication: OSTEOPOROSIS
     Dosage: 20 UG, DAILY (1/D)
     Route: 065
     Dates: start: 200907
  2. FISH OIL [Concomitant]
     Active Substance: FISH OIL
     Dosage: 1 D/F, DAILY (1/D)

REACTIONS (3)
  - Skin disorder [Unknown]
  - Dandruff [Unknown]
  - Scab [Unknown]

NARRATIVE: CASE EVENT DATE: 20100219
